FAERS Safety Report 11693640 (Version 1)
Quarter: 2015Q4

REPORT INFORMATION
  Report Type: Report from Study
  Country: US (occurrence: US)
  Receive Date: 20151103
  Receipt Date: 20151103
  Transmission Date: 20160304
  Serious: Yes (Life-Threatening)
  Sender: FDA-Public Use
  Company Number: US-WATSON-2015-23073

PATIENT
  Age: 48 Year
  Sex: Female

DRUGS (1)
  1. ALPRAZOLAM ER (ACTAVIS LABORATORIES FL, INC.) [Suspect]
     Active Substance: ALPRAZOLAM
     Indication: PRODUCT USED FOR UNKNOWN INDICATION
     Dosage: UNK, UNKNOWN
     Route: 065

REACTIONS (3)
  - Suicide attempt [Unknown]
  - Intentional overdose [None]
  - Overdose [Unknown]
